FAERS Safety Report 4463305-4 (Version None)
Quarter: 2004Q3

REPORT INFORMATION
  Report Type: 
  Country: None (occurrence: None)
  Receive Date: 20040930
  Receipt Date: 20040803
  Transmission Date: 20050211
  Serious: No
  Sender: FDA-Public Use
  Company Number: US-BRISTOL-MYERS SQUIBB COMPANY-12662938

PATIENT

DRUGS (1)
  1. ATAZANAVIR [Suspect]

REACTIONS (1)
  - RASH [None]
